FAERS Safety Report 9604221 (Version 1)
Quarter: 2013Q2

REPORT INFORMATION
  Report Type: Spontaneous
  Country: JP (occurrence: None)
  Receive Date: 20130517
  Receipt Date: 20130517
  Transmission Date: 20140414
  Serious: Yes (Hospitalization)
  Sender: FDA-Public Use
  Company Number: 148055

PATIENT
  Age: 33 Year
  Sex: Female

DRUGS (2)
  1. CISPLATIN [Suspect]
     Dosage: 20MG/M2 ON DAYS 1-5
  2. BLEOMYCIN [Suspect]
     Dosage: 10MG/M2 ON DAYS 2,9, AND 16

REACTIONS (5)
  - Incontinence [None]
  - VIIth nerve paralysis [None]
  - Cerebral infarction [None]
  - Deep vein thrombosis [None]
  - Pulmonary embolism [None]
